FAERS Safety Report 23396893 (Version 1)
Quarter: 2024Q1

REPORT INFORMATION
  Report Type: Spontaneous
  Country: US (occurrence: None)
  Receive Date: 20240111
  Receipt Date: 20240111
  Transmission Date: 20240410
  Serious: No
  Sender: FDA-Public Use
  Company Number: None

PATIENT
  Sex: Female

DRUGS (2)
  1. DEVICE [Suspect]
     Active Substance: DEVICE
     Indication: Pulmonary arterial hypertension
     Dosage: OTHER QUANTITY : 40 NG/KG/MIN;?OTHER FREQUENCY : CONTINOUS;?
     Route: 042
     Dates: start: 202307
  2. REMODULIN [Suspect]
     Active Substance: TREPROSTINIL
     Indication: Pulmonary arterial hypertension
     Dosage: 40 NG/KG/MIN CONTINUOUS ITNRAVENOUS
     Route: 042
     Dates: start: 202307

REACTIONS (6)
  - Device malfunction [None]
  - Device leakage [None]
  - Exposure via skin contact [None]
  - Accidental exposure to product [None]
  - Thermal burn [None]
  - Product reconstitution quality issue [None]
